FAERS Safety Report 8450717-7 (Version None)
Quarter: 2012Q2

REPORT INFORMATION
  Report Type: 
  Country: None (occurrence: None)
  Receive Date: 20120620
  Receipt Date: 20120614
  Transmission Date: 20120825
  Serious: Yes (Other)
  Sender: FDA-Public Use
  Company Number: CA-PFIZER INC-2012108851

PATIENT
  Age: 83 Year
  Sex: Male
  Weight: 96.825 kg

DRUGS (4)
  1. RANITIDINE [Concomitant]
     Indication: GASTROOESOPHAGEAL REFLUX DISEASE
  2. VIAGRA [Suspect]
     Dosage: 1 1/2 PILLS
  3. RANITIDINE [Concomitant]
     Indication: BURNING SENSATION
     Dosage: UNK
  4. VIAGRA [Suspect]
     Indication: ERECTILE DYSFUNCTION
     Dosage: 200 MG, 2 PILLS OF 100MG
     Dates: start: 20040101

REACTIONS (8)
  - CIRCUMSTANCE OR INFORMATION CAPABLE OF LEADING TO MEDICATION ERROR [None]
  - PHOTOPSIA [None]
  - CYANOPSIA [None]
  - CATARACT [None]
  - WEIGHT INCREASED [None]
  - DRUG EFFECT DECREASED [None]
  - MACULAR DEGENERATION [None]
  - SENSORY DISTURBANCE [None]
